FAERS Safety Report 24835861 (Version 1)
Quarter: 2025Q1

REPORT INFORMATION
  Report Type: Spontaneous
  Country: US (occurrence: US)
  Receive Date: 20250113
  Receipt Date: 20250113
  Transmission Date: 20250408
  Serious: No
  Sender: TEVA
  Company Number: US-TEVA-VS-3281953

PATIENT
  Sex: Male

DRUGS (1)
  1. AUSTEDO XR [Suspect]
     Active Substance: DEUTETRABENAZINE
     Indication: Product used for unknown indication
     Dosage: DAILY DOSE: 30 MG
     Route: 065
     Dates: start: 20240904

REACTIONS (2)
  - Dyskinesia [Unknown]
  - Drug ineffective [Unknown]
